FAERS Safety Report 23575395 (Version 1)
Quarter: 2024Q1

REPORT INFORMATION
  Report Type: Spontaneous
  Country: US (occurrence: None)
  Receive Date: 20240227
  Receipt Date: 20240227
  Transmission Date: 20240410
  Serious: No
  Sender: FDA-Public Use
  Company Number: None

PATIENT
  Sex: Male

DRUGS (3)
  1. OTEZLA [Suspect]
     Active Substance: APREMILAST
     Indication: Psoriatic arthropathy
     Dosage: FREQUENCY : TWICE A DAY;?
     Route: 048
     Dates: start: 202202
  2. OTEZLA [Suspect]
     Active Substance: APREMILAST
     Indication: Polyarthritis
  3. OTEZLA [Suspect]
     Active Substance: APREMILAST
     Indication: Psoriasis

REACTIONS (2)
  - Diverticulitis [None]
  - Rash macular [None]
